FAERS Safety Report 7821221-1 (Version None)
Quarter: 2011Q4

REPORT INFORMATION
  Report Type: 
  Country: None (occurrence: None)
  Receive Date: 20111018
  Receipt Date: 20111010
  Transmission Date: 20120403
  Serious: Yes (Death, Hospitalization, Other)
  Sender: FDA-Public Use
  Company Number: FR-TEVA-297666ISR

PATIENT
  Sex: Female

DRUGS (9)
  1. VINCRISTINE [Suspect]
     Indication: ACUTE LYMPHOCYTIC LEUKAEMIA
     Route: 042
     Dates: start: 20090605, end: 20090626
  2. DEXAMETHASONE [Suspect]
     Indication: ACUTE LYMPHOCYTIC LEUKAEMIA
     Route: 048
     Dates: start: 20090605, end: 20090627
  3. IMOVANE [Concomitant]
     Dates: start: 20090530
  4. ASPARAGINASE [Suspect]
     Indication: ACUTE LYMPHOCYTIC LEUKAEMIA
     Dates: start: 20090714
  5. CYTARABINE [Concomitant]
     Dates: start: 20090817
  6. VALACYCLOVIR HYDROCHLORIDE [Concomitant]
     Dates: start: 20090615
  7. METHOTREXATE [Suspect]
     Indication: ACUTE LYMPHOCYTIC LEUKAEMIA
     Dates: start: 20090714
  8. SPRYCEL [Suspect]
     Indication: ACUTE LYMPHOCYTIC LEUKAEMIA
     Route: 048
     Dates: start: 20090605
  9. LANTUS [Concomitant]
     Dates: start: 20090604

REACTIONS (5)
  - FEBRILE BONE MARROW APLASIA [None]
  - ESCHERICHIA SEPSIS [None]
  - PULMONARY EMBOLISM [None]
  - PLEURAL EFFUSION [None]
  - PNEUMOCYSTIS JIROVECI INFECTION [None]
